FAERS Safety Report 9035600 (Version 1)
Quarter: 2013Q1

REPORT INFORMATION
  Report Type: Report from Study
  Country: US (occurrence: US)
  Receive Date: 20130129
  Receipt Date: 20130129
  Transmission Date: 20140127
  Serious: No
  Sender: FDA-Public Use
  Company Number: US-ABBOTT-12P-163-0895832-00

PATIENT
  Age: 70 Year
  Sex: Female

DRUGS (20)
  1. HUMIRA 40 MG/0.8 ML PEN [Suspect]
     Indication: CROHN^S DISEASE
     Dosage: LOADING DOSE
     Route: 058
     Dates: start: 20111220, end: 20111220
  2. HUMIRA 40 MG/0.8 ML PEN [Suspect]
     Route: 058
  3. METOPROLOL [Concomitant]
     Indication: CARDIAC DISORDER
     Dates: start: 20101211
  4. METOPROLOL [Concomitant]
     Indication: MYOCARDIAL INFARCTION
  5. BABY ASPIRIN [Concomitant]
     Indication: THROMBOSIS PROPHYLAXIS
  6. CALCIUM CITRATE [Concomitant]
     Indication: OSTEOPOROSIS
  7. MULTIVITAMINS [Concomitant]
     Indication: VITAMIN SUPPLEMENTATION
  8. PEPCID [Concomitant]
     Indication: DYSPEPSIA
     Dosage: OTC
  9. TYLENOL [Concomitant]
     Indication: PAIN
  10. TYLENOL [Concomitant]
     Indication: PAIN
  11. BUTALBITAL [Concomitant]
     Indication: HEADACHE
  12. IMODIUM [Concomitant]
     Indication: DIARRHOEA
  13. IMODIUM [Concomitant]
     Indication: CROHN^S DISEASE
  14. SINGULAR [Concomitant]
     Indication: SEASONAL ALLERGY
     Dosage: AT BEDDTIME
  15. LATANOPROST [Concomitant]
     Indication: GLAUCOMA
     Dosage: EYE DROPS, 1GT OU AT BEDTIME
  16. TUMS [Concomitant]
     Indication: DYSPEPSIA
     Dosage: OTC
  17. PROBIOTICS [Concomitant]
     Indication: CROHN^S DISEASE
     Dosage: OTC DAILY
  18. FLAXSEED OIL [Concomitant]
     Indication: PHYTOTHERAPY
  19. VAGIFEM [Concomitant]
     Indication: VULVOVAGINAL DRYNESS
  20. VIT D [Concomitant]
     Indication: OSTEOPOROSIS

REACTIONS (4)
  - Injection site pain [Recovered/Resolved]
  - Rash erythematous [Recovered/Resolved]
  - Injection site erythema [Unknown]
  - Injection site swelling [Unknown]
